FAERS Safety Report 10029736 (Version 1)
Quarter: 2014Q1

REPORT INFORMATION
  Report Type: Spontaneous
  Country: US (occurrence: None)
  Receive Date: 20140321
  Receipt Date: 20140321
  Transmission Date: 20141002
  Serious: Yes (Life-Threatening)
  Sender: FDA-Public Use
  Company Number: None

PATIENT
  Age: 65 Year
  Sex: Female

DRUGS (9)
  1. FORTEO [Suspect]
     Route: 058
     Dates: start: 20130418
  2. MAGNESIUM [Concomitant]
  3. CYMBALTA [Concomitant]
  4. FISH OIL [Concomitant]
  5. MIRALAX [Concomitant]
  6. MULTI-VIT [Concomitant]
  7. UNISOM [Concomitant]
  8. CALCIUM [Concomitant]
  9. VIT D [Concomitant]

REACTIONS (2)
  - Cerebrovascular accident [None]
  - Drug dose omission [None]
